FAERS Safety Report 9643240 (Version 5)
Quarter: 2014Q1

REPORT INFORMATION
  Report Type: Report from Study
  Country: US (occurrence: US)
  Receive Date: 20131024
  Receipt Date: 20140312
  Transmission Date: 20141002
  Serious: Yes (Hospitalization)
  Sender: FDA-Public Use
  Company Number: US-JNJFOC-20131010398

PATIENT
  Age: 10 Year
  Sex: Male
  Weight: 28.9 kg

DRUGS (11)
  1. REMICADE [Suspect]
     Indication: COLITIS ULCERATIVE
     Route: 042
     Dates: start: 20121128, end: 20130910
  2. PREDNISONE [Concomitant]
     Route: 065
  3. METHOTREXATE [Concomitant]
     Route: 065
  4. ZOFRAN [Concomitant]
     Route: 065
  5. FOLIC ACID [Concomitant]
     Route: 065
  6. 5-ASA [Concomitant]
     Route: 054
  7. MEFOXIN [Concomitant]
     Route: 065
  8. AUGMENTIN [Concomitant]
     Route: 065
  9. TYLENOL [Concomitant]
     Route: 065
  10. MORPHINE [Concomitant]
     Route: 065
  11. CANASA [Concomitant]
     Route: 065

REACTIONS (4)
  - Colitis ulcerative [Recovered/Resolved]
  - Small intestinal obstruction [Recovered/Resolved]
  - Wound infection [Recovered/Resolved]
  - Small intestinal obstruction [Recovered/Resolved]
